FAERS Safety Report 6443806-X (Version None)
Quarter: 2009Q4

REPORT INFORMATION
  Report Type: 
  Country: None (occurrence: None)
  Receive Date: 20091117
  Receipt Date: 20091111
  Transmission Date: 20100525
  Serious: Yes (Other)
  Sender: FDA-Public Use
  Company Number: PHHY2009JP45313

PATIENT
  Sex: Female

DRUGS (1)
  1. METHERGINE [Suspect]
     Dosage: UNK
     Route: 048
     Dates: end: 20091015

REACTIONS (1)
  - DEEP VEIN THROMBOSIS [None]
